FAERS Safety Report 24846502 (Version 1)
Quarter: 2025Q1

REPORT INFORMATION
  Report Type: Spontaneous
  Country: US (occurrence: US)
  Receive Date: 20250115
  Receipt Date: 20250115
  Transmission Date: 20250409
  Serious: No
  Sender: MERCK
  Company Number: US-009507513-2501USA003146

PATIENT
  Age: 64 Year
  Sex: Male

DRUGS (1)
  1. KEYTRUDA [Suspect]
     Active Substance: PEMBROLIZUMAB
     Indication: Small cell lung cancer
     Dosage: UNK, Q3W
     Route: 042
     Dates: start: 202203, end: 202404

REACTIONS (9)
  - Pain [Unknown]
  - Pleural effusion [Unknown]
  - Rash [Recovered/Resolved]
  - Dry skin [Recovered/Resolved]
  - Salivary hyposecretion [Recovered/Resolved]
  - Hyperkeratosis [Recovered/Resolved]
  - Constipation [Recovered/Resolved]
  - Flatulence [Recovered/Resolved]
  - Adverse event [Recovered/Resolved]

NARRATIVE: CASE EVENT DATE: 20220601
